FAERS Safety Report 9083284 (Version 1)
Quarter: 2013Q1

REPORT INFORMATION
  Report Type: Report from Study
  Country: US (occurrence: US)
  Receive Date: 20130130
  Receipt Date: 20130130
  Transmission Date: 20140127
  Serious: No
  Sender: FDA-Public Use
  Company Number: US-ABBOTT-12P-163-0971273-00

PATIENT
  Age: 40 Year
  Sex: Male

DRUGS (1)
  1. HUMIRA 40 MG/0.8 ML PEN [Suspect]
     Indication: PSORIATIC ARTHROPATHY
     Dosage: CURASCRIPT DOES NOT COLLECT LOT NUMBERS
     Route: 058
     Dates: start: 200911

REACTIONS (1)
  - Food poisoning [Recovered/Resolved]
